FAERS Safety Report 13419488 (Version 3)
Quarter: 2019Q1

REPORT INFORMATION
  Report Type: Report from Study
  Country: JP (occurrence: JP)
  Receive Date: 20170407
  Receipt Date: 20190224
  Transmission Date: 20190417
  Serious: Yes (Death, Life-Threatening, Hospitalization, Other)
  Sender: FDA-Public Use
  Company Number: JP-BRISTOL-MYERS SQUIBB COMPANY-BMS-2016-034467

PATIENT
  Age: 66 Year
  Sex: Male

DRUGS (2)
  1. NIVOLUMAB [Suspect]
     Active Substance: NIVOLUMAB
     Indication: NON-SMALL CELL LUNG CANCER RECURRENT
     Dosage: 3 MG/KG, UNK, 200MG
     Route: 041
     Dates: start: 20160330, end: 20160330
  2. NIVOLUMAB [Suspect]
     Active Substance: NIVOLUMAB
     Indication: PRODUCT USED FOR UNKNOWN INDICATION
     Dosage: 3 MG/KG, UNK, 200MG
     Route: 041
     Dates: start: 20160413, end: 20160413

REACTIONS (4)
  - Fatigue [Unknown]
  - Trousseau^s syndrome [Fatal]
  - Cognitive disorder [Not Recovered/Not Resolved]
  - Fibrin D dimer increased [Fatal]

NARRATIVE: CASE EVENT DATE: 20160413
